FAERS Safety Report 6220974-6 (Version None)
Quarter: 2009Q2

REPORT INFORMATION
  Report Type: 
  Country: None (occurrence: None)
  Receive Date: 20090610
  Receipt Date: 20090602
  Transmission Date: 20091009
  Serious: Yes (Other)
  Sender: FDA-Public Use
  Company Number: US-PFIZER INC-2009197777

PATIENT
  Sex: Female
  Weight: 71.655 kg

DRUGS (12)
  1. CHANTIX [Suspect]
     Dosage: 0.5 MG, 1X/DAY
     Dates: start: 20090404
  2. PROMETHAZINE [Suspect]
     Indication: SMOKING CESSATION THERAPY
  3. METFORMIN HYDROCHLORIDE/SITAGLIPTIN [Concomitant]
     Dosage: UNK
  4. LISINOPRIL [Concomitant]
     Dosage: UNK
  5. ACETYLSALICYLIC ACID [Concomitant]
     Dosage: UNK
  6. TRICOR [Concomitant]
     Dosage: UNK
  7. PLETAL [Concomitant]
     Dosage: UNK
  8. LORAZEPAM [Concomitant]
     Dosage: UNK
  9. LEXAPRO [Concomitant]
     Dosage: UNK
  10. COREG [Concomitant]
     Dosage: UNK
  11. AMLODIPINE BESILATE [Concomitant]
     Dosage: UNK
  12. HYDROCODONE [Concomitant]

REACTIONS (1)
  - FEELING DRUNK [None]
